FAERS Safety Report 7885532-6 (Version None)
Quarter: 2011Q4

REPORT INFORMATION
  Report Type: 
  Country: None (occurrence: None)
  Receive Date: 20111102
  Receipt Date: 20110623
  Transmission Date: 20120403
  Serious: No
  Sender: FDA-Public Use
  Company Number: US-AMGEN-USASP2011026571

PATIENT
  Age: 76 Year
  Sex: Male
  Weight: 86.168 kg

DRUGS (3)
  1. ENBREL [Suspect]
     Indication: PSORIASIS
     Dosage: 50 MG, QWK
     Route: 058
     Dates: start: 20110425
  2. TEGRETOL [Concomitant]
  3. ANTIHYPERTENSIVES [Concomitant]

REACTIONS (6)
  - FALL [None]
  - MUSCLE SPASMS [None]
  - PRURITUS GENERALISED [None]
  - LACERATION [None]
  - INSOMNIA [None]
  - WOUND HAEMORRHAGE [None]
